FAERS Safety Report 5269203-0 (Version None)
Quarter: 2007Q1

REPORT INFORMATION
  Report Type: 
  Country: None (occurrence: None)
  Receive Date: 20070319
  Receipt Date: 20070308
  Transmission Date: 20070707
  Serious: Yes (Other)
  Sender: FDA-Public Use
  Company Number: US-AMGEN-KDL207977

PATIENT
  Sex: Male
  Weight: 73.1 kg

DRUGS (10)
  1. EPOGEN [Suspect]
     Indication: RENAL FAILURE CHRONIC
     Route: 058
     Dates: start: 20040701, end: 20070206
  2. RENAGEL [Concomitant]
  3. HYDRALAZINE HYDROCHLORIDE [Concomitant]
     Dates: start: 20070129
  4. LISINOPRIL [Concomitant]
  5. ALLOPURINOL [Concomitant]
     Route: 048
     Dates: end: 20061101
  6. BUPROPION HCL [Concomitant]
  7. NEPHRO-VITE [Concomitant]
  8. COREG [Concomitant]
  9. PHOSLO [Concomitant]
  10. FELODIPINE [Concomitant]

REACTIONS (5)
  - ANTI-ERYTHROPOIETIN ANTIBODY POSITIVE [None]
  - BONE MARROW FAILURE [None]
  - HAEMOGLOBIN DECREASED [None]
  - INJECTION SITE URTICARIA [None]
  - PARVOVIRUS B19 SEROLOGY POSITIVE [None]
